FAERS Safety Report 10610347 (Version 4)
Quarter: 2015Q4

REPORT INFORMATION
  Report Type: Report from Study
  Country: US (occurrence: US)
  Receive Date: 20141126
  Receipt Date: 20151015
  Transmission Date: 20160304
  Serious: Yes (Hospitalization, Other)
  Sender: FDA-Public Use
  Company Number: US-SA-2014SA021362

PATIENT
  Age: 72 Year
  Sex: Female

DRUGS (2)
  1. AUBAGIO [Suspect]
     Active Substance: TERIFLUNOMIDE
     Indication: MULTIPLE SCLEROSIS
     Route: 048
     Dates: start: 20140214, end: 20150511
  2. ZYRTEC [Concomitant]
     Active Substance: CETIRIZINE HYDROCHLORIDE

REACTIONS (19)
  - Feeling abnormal [Unknown]
  - Dysentery [Unknown]
  - Multiple sclerosis relapse [Recovered/Resolved]
  - Muscle spasms [Recovering/Resolving]
  - Extra dose administered [Unknown]
  - Insomnia [Recovering/Resolving]
  - Pruritus [Unknown]
  - Paraesthesia [Unknown]
  - Asthenia [Unknown]
  - Nausea [Unknown]
  - Discomfort [Recovering/Resolving]
  - Therapeutic response unexpected [Unknown]
  - Dizziness [Recovered/Resolved]
  - Pain [Recovering/Resolving]
  - Tremor [Unknown]
  - Gastrointestinal disorder [Unknown]
  - Head discomfort [Recovering/Resolving]
  - Diarrhoea [Unknown]
  - Alopecia [Unknown]

NARRATIVE: CASE EVENT DATE: 201402
